FAERS Safety Report 6229820-8 (Version None)
Quarter: 2009Q2

REPORT INFORMATION
  Report Type: 
  Country: None (occurrence: None)
  Receive Date: 20090615
  Receipt Date: 20090603
  Transmission Date: 20091009
  Serious: Yes (Other)
  Sender: FDA-Public Use
  Company Number: CA-PFIZER INC-2009217714

PATIENT
  Age: 52 Year

DRUGS (4)
  1. CHAMPIX [Suspect]
     Indication: SMOKING CESSATION THERAPY
     Dosage: UNK
     Dates: start: 20090502, end: 20090520
  2. PRIMIDONE [Concomitant]
     Dosage: UNK
  3. EPIVAL [Concomitant]
     Dosage: UNK
  4. RIVOTRIL [Concomitant]
     Indication: EPILEPSY
     Dosage: UNK

REACTIONS (2)
  - DEJA VU [None]
  - EPILEPTIC AURA [None]
